FAERS Safety Report 9139896 (Version 1)
Quarter: 2013Q1

REPORT INFORMATION
  Report Type: Spontaneous
  Country: US (occurrence: US)
  Receive Date: 20130305
  Receipt Date: 20130305
  Transmission Date: 20140127
  Serious: Yes (Other)
  Sender: FDA-Public Use
  Company Number: US-PFIZER INC-2013076115

PATIENT
  Sex: 0

DRUGS (3)
  1. LYRICA [Suspect]
     Indication: INTERVERTEBRAL DISC INJURY
     Dosage: UNK
  2. LYRICA [Suspect]
     Indication: NEUROPATHY PERIPHERAL
  3. LYRICA [Suspect]
     Indication: NERVE INJURY

REACTIONS (1)
  - Pain [Unknown]
